FAERS Safety Report 10741979 (Version 12)
Quarter: 2025Q1

REPORT INFORMATION
  Report Type: Spontaneous
  Country: US (occurrence: US)
  Receive Date: 20150127
  Receipt Date: 20250311
  Transmission Date: 20250408
  Serious: Yes (Hospitalization, Other)
  Sender: PFIZER
  Company Number: US-PFIZER INC-2015030234

PATIENT
  Age: 62 Year
  Sex: Female
  Weight: 83.91 kg

DRUGS (17)
  1. XELJANZ [Suspect]
     Active Substance: TOFACITINIB CITRATE
     Indication: Rheumatoid arthritis
     Dosage: 5 MG, 2X/DAY/5 MG, 2X/DAY (EVEN DAYS)
     Route: 048
     Dates: start: 2011
  2. XELJANZ [Suspect]
     Active Substance: TOFACITINIB CITRATE
  3. XELJANZ [Suspect]
     Active Substance: TOFACITINIB CITRATE
     Dosage: 10 MG, 2X/DAY/10 MG, 2X/DAY (ODD DAYS)
     Route: 048
  4. XELJANZ [Suspect]
     Active Substance: TOFACITINIB CITRATE
     Dosage: 5 MG + 10 MG, TAKE 15 MG ON ODD DAYS, TAKE 10 MG ON EVEN DAYS
     Route: 048
  5. XELJANZ [Suspect]
     Active Substance: TOFACITINIB CITRATE
     Dosage: 5 MG + 10 MG, TAKE 15 MG ON ODD DAYS, TAKE 10 MG ON EVEN DAYS
     Route: 048
  6. XELJANZ [Suspect]
     Active Substance: TOFACITINIB CITRATE
     Dosage: 10 MG, ONCE A DAY ON ODD DAYS
     Route: 048
     Dates: start: 202011
  7. XELJANZ [Suspect]
     Active Substance: TOFACITINIB CITRATE
     Dosage: 15 MG, ONCE A DAY ON EVEN DAYS
     Route: 048
     Dates: start: 202011
  8. XELJANZ [Suspect]
     Active Substance: TOFACITINIB CITRATE
     Dosage: 10 MG, EVERY OTHER DAY
  9. XELJANZ [Suspect]
     Active Substance: TOFACITINIB CITRATE
     Dosage: 15 MG, ON THE EVERY OTHER DAY ONE
  10. XELJANZ [Suspect]
     Active Substance: TOFACITINIB CITRATE
     Dosage: 5 MG, ON EVEN DAYS
  11. XELJANZ [Suspect]
     Active Substance: TOFACITINIB CITRATE
     Dosage: 10 MG, ON ODD DAYS
  12. XELJANZ [Suspect]
     Active Substance: TOFACITINIB CITRATE
     Dosage: 3 TABLETS OF 10 MG ON EVEN DAYS
     Route: 048
  13. XELJANZ [Suspect]
     Active Substance: TOFACITINIB CITRATE
     Dosage: 3 TABLETS OF 5 MG ON EVEN DAYS
     Route: 048
  14. XELJANZ [Suspect]
     Active Substance: TOFACITINIB CITRATE
     Dosage: 5 MG, 1 TABLET TWICE A DAY
     Route: 048
  15. XELJANZ [Suspect]
     Active Substance: TOFACITINIB CITRATE
     Dosage: 10 MG, 1 TABLET TWICE A DAY
     Route: 048
  16. CELEBREX [Concomitant]
     Active Substance: CELECOXIB
  17. TREXALL [Concomitant]
     Active Substance: METHOTREXATE SODIUM

REACTIONS (7)
  - Tendon rupture [Unknown]
  - Pain in extremity [Unknown]
  - Drug hypersensitivity [Unknown]
  - Body height decreased [Unknown]
  - Speech disorder [Unknown]
  - Off label use [Unknown]
  - Overdose [Unknown]
